FAERS Safety Report 24261769 (Version 1)
Quarter: 2024Q3

REPORT INFORMATION
  Report Type: Report from Study
  Country: US (occurrence: US)
  Receive Date: 20240829
  Receipt Date: 20240829
  Transmission Date: 20241016
  Serious: Yes (Other)
  Sender: ACADIA PHARMACEUTICALS
  Company Number: US-ACADIA PHARMACEUTICALS INC.-ACA-2024-TRF-004475

PATIENT
  Sex: Female

DRUGS (1)
  1. DAYBUE [Suspect]
     Active Substance: TROFINETIDE
     Indication: Rett syndrome
     Dosage: 10ML IN THE AM, 20ML AT MID-DAY AND 10ML IN THE PM

REACTIONS (8)
  - Seizure [Recovering/Resolving]
  - Inappropriate schedule of product administration [Not Recovered/Not Resolved]
  - Influenza [Not Recovered/Not Resolved]
  - Gastroenteritis viral [Not Recovered/Not Resolved]
  - Ear infection [Not Recovered/Not Resolved]
  - Blunted affect [Not Recovered/Not Resolved]
  - Depressed mood [Not Recovered/Not Resolved]
  - Underdose [Not Recovered/Not Resolved]
